FAERS Safety Report 4347552-8 (Version None)
Quarter: 2004Q2

REPORT INFORMATION
  Report Type: 
  Country: None (occurrence: None)
  Receive Date: 20040423
  Receipt Date: 20040423
  Transmission Date: 20050107
  Serious: No
  Sender: FDA-Public Use
  Company Number: None

PATIENT
  Sex: Male

DRUGS (1)
  1. BENAZEPRIL HCL [Suspect]
     Indication: HYPERTENSION
     Dosage: 1 TAB TWICE DAILY BY MOUTH
     Route: 048
     Dates: start: 20040327, end: 20040330

REACTIONS (4)
  - ABDOMINAL PAIN [None]
  - ABDOMINAL PAIN UPPER [None]
  - DIZZINESS [None]
  - PHARMACEUTICAL PRODUCT COMPLAINT [None]
